FAERS Safety Report 6309447-X (Version None)
Quarter: 2009Q3

REPORT INFORMATION
  Report Type: 
  Country: None (occurrence: None)
  Receive Date: 20090814
  Receipt Date: 20090805
  Transmission Date: 20100115
  Serious: Yes (Hospitalization)
  Sender: FDA-Public Use
  Company Number: DE-JNJFOC-20090705424

PATIENT
  Sex: Female

DRUGS (1)
  1. CAELYX [Suspect]
     Indication: ACUTE MYELOID LEUKAEMIA
     Route: 042

REACTIONS (2)
  - ANGINA PECTORIS [None]
  - INFUSION RELATED REACTION [None]
